FAERS Safety Report 6940382-X (Version None)
Quarter: 2010Q3

REPORT INFORMATION
  Report Type: 
  Country: None (occurrence: None)
  Receive Date: 20100820
  Receipt Date: 20100812
  Transmission Date: 20110219
  Serious: Yes (Hospitalization, Other)
  Sender: FDA-Public Use
  Company Number: 2010SP014796

PATIENT
  Age: 36 Year
  Sex: Female
  Weight: 154.223 kg

DRUGS (4)
  1. NUVARING [Suspect]
     Indication: CONTRACEPTION
     Dosage: ; QM; VAG
     Route: 067
     Dates: start: 20050801, end: 20061001
  2. NUVARING [Suspect]
     Indication: CONTRACEPTION
     Dosage: ; QM; VAG
     Route: 067
     Dates: start: 20071101, end: 20080303
  3. ALEVE (CAPLET) [Concomitant]
  4. ACETAMINOPHEN [Concomitant]

REACTIONS (28)
  - ABORTION MISSED [None]
  - ANXIETY [None]
  - ASTHENIA [None]
  - CERVICAL DYSPLASIA [None]
  - CHROMOSOMAL MUTATION [None]
  - CONSTIPATION [None]
  - DEEP VEIN THROMBOSIS [None]
  - DEPRESSION [None]
  - DIARRHOEA [None]
  - DRUG EXPOSURE DURING PREGNANCY [None]
  - DRY SKIN [None]
  - DYSPEPSIA [None]
  - FATIGUE [None]
  - FLATULENCE [None]
  - GINGIVAL BLEEDING [None]
  - HAEMORRHOIDS [None]
  - INCREASED TENDENCY TO BRUISE [None]
  - JOINT SWELLING [None]
  - MUSCLE SPASMS [None]
  - NAUSEA [None]
  - PAIN IN EXTREMITY [None]
  - PRURITUS [None]
  - PULMONARY EMBOLISM [None]
  - STRESS [None]
  - THROMBOPHLEBITIS [None]
  - THROMBOSIS [None]
  - VISION BLURRED [None]
  - VOMITING [None]
